FAERS Safety Report 5494028-0 (Version None)
Quarter: 2007Q4

REPORT INFORMATION
  Report Type: 
  Country: None (occurrence: None)
  Receive Date: 20071023
  Receipt Date: 20071011
  Transmission Date: 20080405
  Serious: Yes (Other)
  Sender: FDA-Public Use
  Company Number: KR-PFIZER INC-2007085420

PATIENT
  Age: 56 Year
  Sex: Female

DRUGS (1)
  1. ANTITHYMOCYTE IMMUNOGLOBULIN SOLUTION, STERILE [Suspect]
     Indication: IDIOPATHIC THROMBOCYTOPENIC PURPURA
     Dosage: DAILY DOSE:400MG/KG

REACTIONS (2)
  - DEEP VEIN THROMBOSIS [None]
  - PULMONARY EMBOLISM [None]
